FAERS Safety Report 20771825 (Version 1)
Quarter: 2022Q2

REPORT INFORMATION
  Report Type: Spontaneous
  Country: US (occurrence: US)
  Receive Date: 20220430
  Receipt Date: 20220430
  Transmission Date: 20220721
  Serious: No
  Sender: FDA-Public Use
  Company Number: US-LUPIN PHARMACEUTICALS INC.-2022-06237

PATIENT
  Age: 17 Year
  Sex: Male

DRUGS (5)
  1. AZITHROMYCIN [Suspect]
     Active Substance: AZITHROMYCIN
     Indication: COVID-19 pneumonia
     Dosage: UNK
     Route: 065
  2. REMDESIVIR [Suspect]
     Active Substance: REMDESIVIR
     Indication: COVID-19 pneumonia
     Dosage: UNK
     Route: 065
  3. DEXAMETHASONE [Suspect]
     Active Substance: DEXAMETHASONE
     Indication: COVID-19 pneumonia
     Dosage: UNK
     Route: 065
  4. BECLOMETHASONE [Suspect]
     Active Substance: BECLOMETHASONE
     Indication: COVID-19 pneumonia
     Dosage: UNK UNK, 80 MCG, BID
  5. IRON [Suspect]
     Active Substance: IRON
     Indication: COVID-19 pneumonia
     Dosage: UNK
     Route: 065

REACTIONS (1)
  - Off label use [Unknown]
